FAERS Safety Report 22110659 (Version 2)
Quarter: 2023Q1

REPORT INFORMATION
  Report Type: Spontaneous
  Country: IT (occurrence: IT)
  Receive Date: 20230317
  Receipt Date: 20230321
  Transmission Date: 20230418
  Serious: Yes (Death, Other)
  Sender: FDA-Public Use
  Company Number: IT-BAILLEULSA-2022002836

PATIENT
  Age: 30 Year
  Sex: Female
  Weight: 75 kg

DRUGS (6)
  1. MINOXIDIL [Suspect]
     Active Substance: MINOXIDIL
     Indication: Androgenetic alopecia
     Dosage: BEFORE, DURING AND AFTER MEALS
     Route: 042
     Dates: start: 20150101, end: 20220101
  2. MINOXIDIL [Suspect]
     Active Substance: MINOXIDIL
     Dosage: BEFORE, DURING AND AFTER MEALS
     Route: 048
     Dates: start: 20150101, end: 20220101
  3. MINOXIDIL [Suspect]
     Active Substance: MINOXIDIL
     Dosage: BEFORE, DURING AND AFTER MEALS
     Route: 047
     Dates: start: 20150101, end: 20220101
  4. SOVENTOL HYDROCORTISON [Concomitant]
     Indication: Skin disorder
     Route: 065
     Dates: start: 20150115
  5. DIATHYNIL [Concomitant]
     Indication: Skin exfoliation
     Route: 065
     Dates: start: 20100510, end: 20151015
  6. DIATHYNIL [Concomitant]
     Indication: Seborrhoea

REACTIONS (3)
  - Hypersensitivity [Fatal]
  - Epilepsy [Unknown]
  - Incorrect route of product administration [Unknown]

NARRATIVE: CASE EVENT DATE: 20200510
